FAERS Safety Report 5836206-4 (Version None)
Quarter: 2008Q3

REPORT INFORMATION
  Report Type: 
  Country: None (occurrence: None)
  Receive Date: 20080805
  Receipt Date: 20080730
  Transmission Date: 20090109
  Serious: Yes (Death, Hospitalization)
  Sender: FDA-Public Use
  Company Number: 2008SP015626

PATIENT
  Age: 73 Year
  Sex: Male

DRUGS (2)
  1. TEMOZOLOMIDE [Suspect]
     Indication: GLIOBLASTOMA MULTIFORME
     Dosage: 165 MG/M2; ; PO
     Route: 048
  2. DEXAMETHASONE TAB [Suspect]
     Indication: GLIOBLASTOMA MULTIFORME
     Dosage: 4 MG; BID;

REACTIONS (2)
  - BLOOD CULTURE POSITIVE [None]
  - MENINGITIS CRYPTOCOCCAL [None]
